FAERS Safety Report 17657049 (Version 1)
Quarter: 2020Q2

REPORT INFORMATION
  Report Type: Spontaneous
  Country: US (occurrence: US)
  Receive Date: 20200410
  Receipt Date: 20200410
  Transmission Date: 20200713
  Serious: Yes (Hospitalization)
  Sender: FDA-Public Use
  Company Number: US-XTTRIUM LABORATORIES, INC-2082639

PATIENT
  Sex: Male

DRUGS (1)
  1. CHLORHEXIDINE GLUCONATE. [Suspect]
     Active Substance: CHLORHEXIDINE GLUCONATE
     Indication: TOOTH EXTRACTION
     Route: 048
     Dates: start: 20200107, end: 20200115

REACTIONS (4)
  - Dyspnoea [Unknown]
  - Hiccups [Unknown]
  - Procedural site reaction [Unknown]
  - Chest pain [Unknown]

NARRATIVE: CASE EVENT DATE: 20200107
